FAERS Safety Report 4717939-X (Version None)
Quarter: 2005Q3

REPORT INFORMATION
  Report Type: 
  Country: None (occurrence: None)
  Receive Date: 20050715
  Receipt Date: 20050705
  Transmission Date: 20060218
  Serious: Yes (Hospitalization, Other)
  Sender: FDA-Public Use
  Company Number: 215441

PATIENT
  Age: 29 Year
  Sex: Male

DRUGS (1)
  1. MABTHERA (RITUXIMAB) CONC FOR SOLUTION FOR INFUSION [Suspect]
     Indication: LYMPHOMA
     Dosage: 375 MG/M2, INTRAVENOUS
     Route: 042
     Dates: start: 20050520, end: 20050520

REACTIONS (3)
  - NEUTROPENIA [None]
  - POSTOPERATIVE INFECTION [None]
  - WOUND INFECTION STAPHYLOCOCCAL [None]
